FAERS Safety Report 13383498 (Version 2)
Quarter: 2017Q2

REPORT INFORMATION
  Report Type: Spontaneous
  Country: MX (occurrence: MX)
  Receive Date: 20170329
  Receipt Date: 20170404
  Transmission Date: 20170830
  Serious: No
  Sender: FDA-Public Use
  Company Number: MX-BAYER-2017-059030

PATIENT
  Age: 5 Year
  Sex: Male

DRUGS (4)
  1. KOGENATE FS [Suspect]
     Active Substance: ANTIHEMOPHILIC FACTOR, HUMAN RECOMBINANT
     Indication: HAEMOPHILIA
     Dosage: 750 IU, OW
     Dates: start: 2014
  2. KOVALTRY [Suspect]
     Active Substance: ANTIHEMOPHILIC FACTOR, HUMAN RECOMBINANT
     Indication: HAEMOPHILIA
     Dosage: 750 IU, OW
     Dates: start: 2014
  3. KOVALTRY [Suspect]
     Active Substance: ANTIHEMOPHILIC FACTOR, HUMAN RECOMBINANT
     Indication: HAEMOPHILIA
     Dosage: 500 IU WEDNESDAY AND SATURDAY
     Dates: start: 2014
  4. KOGENATE FS [Suspect]
     Active Substance: ANTIHEMOPHILIC FACTOR, HUMAN RECOMBINANT
     Indication: HAEMOPHILIA
     Dosage: 500 IU WEDNESDAY AND SATURDAY
     Dates: start: 2014

REACTIONS (2)
  - Therapeutic product ineffective [Not Recovered/Not Resolved]
  - Coagulation factor VIII level decreased [None]

NARRATIVE: CASE EVENT DATE: 2014
